FAERS Safety Report 5577672-1 (Version None)
Quarter: 2007Q4

REPORT INFORMATION
  Report Type: 
  Country: None (occurrence: None)
  Receive Date: 20071231
  Receipt Date: 20071228
  Transmission Date: 20080405
  Serious: Yes (Life-Threatening, Hospitalization)
  Sender: FDA-Public Use
  Company Number: RU-BRISTOL-MYERS SQUIBB COMPANY-13952478

PATIENT
  Age: 51 Year
  Sex: Male

DRUGS (4)
  1. CDDP [Suspect]
     Indication: GASTRIC CANCER
     Dosage: CYCLE 1-2 FROM 19-FEB-2007.
     Route: 041
     Dates: start: 20070416, end: 20070416
  2. FLUOROURACIL [Suspect]
     Indication: GASTRIC CANCER
     Dosage: CYCLE 3: DAY 1-5 EVERY 28 DAYS. CYCLE 1-2, 19-FEB-2007
     Route: 041
     Dates: start: 20070416, end: 20070420
  3. TRAMADOL HCL [Suspect]
     Indication: ABDOMINAL PAIN
     Route: 030
     Dates: start: 20070416, end: 20070419
  4. PROMEDOLUM [Suspect]
     Indication: ABDOMINAL PAIN
     Route: 030
     Dates: start: 20070416, end: 20070419

REACTIONS (1)
  - CIRCULATORY COLLAPSE [None]
